FAERS Safety Report 17335473 (Version 2)
Quarter: 2020Q1

REPORT INFORMATION
  Report Type: Report from Study
  Country: US (occurrence: US)
  Receive Date: 20200128
  Receipt Date: 20200217
  Transmission Date: 20200409
  Serious: Yes (Hospitalization, Other)
  Sender: FDA-Public Use
  Company Number: US-BRISTOL-MYERS SQUIBB COMPANY-BMS-2020-005874

PATIENT
  Age: 47 Year
  Sex: Male
  Weight: 98.9 kg

DRUGS (2)
  1. IPILIMUMAB [Suspect]
     Active Substance: IPILIMUMAB
     Indication: PERITONEAL NEOPLASM
     Dosage: 95.3 MILLIGRAM
     Route: 042
     Dates: start: 20190821, end: 20191223
  2. NIVOLUMAB [Suspect]
     Active Substance: NIVOLUMAB
     Indication: PERITONEAL NEOPLASM
     Dosage: 240 MILLIGRAM
     Route: 042
     Dates: start: 20190821, end: 20191223

REACTIONS (3)
  - Upper gastrointestinal haemorrhage [Unknown]
  - Pulmonary embolism [Recovering/Resolving]
  - Lower gastrointestinal haemorrhage [Unknown]

NARRATIVE: CASE EVENT DATE: 20200109
